FAERS Safety Report 5274906-8 (Version None)
Quarter: 2007Q1

REPORT INFORMATION
  Report Type: 
  Country: None (occurrence: None)
  Receive Date: 20061208
  Receipt Date: 20060622
  Transmission Date: 20070707
  Serious: No
  Sender: FDA-Public Use
  Company Number: 2005UW02409

PATIENT
  Age: 52 Year
  Sex: Male

DRUGS (9)
  1. CRESTOR [Suspect]
     Indication: DYSLIPIDAEMIA
     Dosage: 20 MG QD PO
     Route: 048
     Dates: start: 20041001, end: 20050201
  2. MAXZIDE [Concomitant]
  3. ASPIRIN [Concomitant]
  4. PROTOPIC [Concomitant]
  5. PENLAC [Concomitant]
  6. VITAMIN E [Concomitant]
  7. SELENIUM SULFIDE [Concomitant]
  8. ASCORBIC ACID [Concomitant]
  9. ST. JOHN'S WORT [Concomitant]

REACTIONS (1)
  - RHABDOMYOLYSIS [None]
